FAERS Safety Report 14010411 (Version 3)
Quarter: 2018Q1

REPORT INFORMATION
  Report Type: Report from Study
  Country: BE (occurrence: BE)
  Receive Date: 20170926
  Receipt Date: 20180129
  Transmission Date: 20180508
  Serious: Yes (Death, Hospitalization, Other)
  Sender: FDA-Public Use
  Company Number: BE-TAKEDA-2017TUS019305

PATIENT
  Sex: Male
  Weight: 62 kg

DRUGS (1)
  1. VEDOLIZUMAB [Suspect]
     Active Substance: VEDOLIZUMAB
     Indication: ACUTE GRAFT VERSUS HOST DISEASE
     Dosage: 300 MG, UNK
     Route: 048
     Dates: start: 20170123, end: 20170410

REACTIONS (10)
  - Acute graft versus host disease [Fatal]
  - Stenotrophomonas infection [Fatal]
  - Hypokalaemia [Recovered/Resolved]
  - Acute respiratory distress syndrome [Fatal]
  - Deep vein thrombosis [Not Recovered/Not Resolved]
  - Cardiac failure [Not Recovered/Not Resolved]
  - Hypoalbuminaemia [Not Recovered/Not Resolved]
  - Bronchopulmonary aspergillosis [Fatal]
  - General physical health deterioration [Fatal]
  - Multiple organ dysfunction syndrome [Fatal]

NARRATIVE: CASE EVENT DATE: 201701
